FAERS Safety Report 13090758 (Version 6)
Quarter: 2017Q4

REPORT INFORMATION
  Report Type: Report from Study
  Country: IT (occurrence: IT)
  Receive Date: 20170106
  Receipt Date: 20171025
  Transmission Date: 20180320
  Serious: Yes (Hospitalization)
  Sender: FDA-Public Use
  Company Number: IT-ROCHE-1874730

PATIENT
  Age: 65 Year
  Sex: Male
  Weight: 91 kg

DRUGS (19)
  1. SOLDESAM [Concomitant]
     Active Substance: DEXAMETHASONE
     Indication: HYPERCREATININAEMIA
     Route: 042
     Dates: start: 20161227, end: 20161228
  2. BISOPROLOLO [Concomitant]
     Active Substance: BISOPROLOL FUMARATE
     Indication: HYPERTENSION
     Route: 048
  3. NOVONORM [Concomitant]
     Active Substance: REPAGLINIDE
     Indication: DIABETES MELLITUS
     Route: 048
  4. CARDIOASPIRINA [Concomitant]
     Active Substance: ASPIRIN
     Indication: MYOCARDIAL ISCHAEMIA
     Route: 048
  5. REPAGLINIDE. [Concomitant]
     Active Substance: REPAGLINIDE
     Indication: DIABETES MELLITUS
     Route: 048
  6. LANTUS [Concomitant]
     Active Substance: INSULIN GLARGINE
     Indication: DIABETES MELLITUS
     Route: 058
     Dates: start: 20170111
  7. COBIMETINIB. [Suspect]
     Active Substance: COBIMETINIB
     Indication: COLORECTAL ADENOCARCINOMA
     Dosage: MOST RECENT DOSE: 27/DEC/2016
     Route: 048
     Dates: start: 20161213
  8. CORLENTOR [Concomitant]
     Active Substance: IVABRADINE HYDROCHLORIDE
     Indication: MYOCARDIAL ISCHAEMIA
     Route: 048
  9. VASORETIC [Concomitant]
     Active Substance: ENALAPRIL MALEATE\HYDROCHLOROTHIAZIDE
     Indication: HYPERTENSION
     Route: 048
  10. TAVOR (LORAZEPAM) [Concomitant]
     Active Substance: LORAZEPAM
     Indication: INSOMNIA
     Route: 048
     Dates: start: 20170103
  11. LUCEN [Concomitant]
     Active Substance: ESOMEPRAZOLE
     Indication: PROPHYLAXIS
     Route: 048
     Dates: end: 20161230
  12. SEQUACOR [Concomitant]
     Active Substance: BISOPROLOL
     Indication: HYPERTENSION
     Route: 048
  13. TRISCUDIL [Concomitant]
     Indication: MYOCARDIAL ISCHAEMIA
  14. PANTOPRAZOLE [Concomitant]
     Active Substance: PANTOPRAZOLE
     Indication: PROPHYLAXIS
     Route: 048
     Dates: end: 20161231
  15. ATEZOLIZUMAB. [Suspect]
     Active Substance: ATEZOLIZUMAB
     Indication: COLORECTAL ADENOCARCINOMA
     Dosage: MOST RECENT DOSE 28/DEC/2016 AT 13:15
     Route: 042
     Dates: start: 20161213
  16. ADENURIC [Concomitant]
     Active Substance: FEBUXOSTAT
     Indication: HYPERURICAEMIA
     Route: 048
  17. SALINE [Concomitant]
     Active Substance: SODIUM CHLORIDE
     Indication: HYPERCREATININAEMIA
     Route: 042
     Dates: start: 20161228
  18. DELTACORTENE [Concomitant]
     Active Substance: PREDNISONE
     Indication: ASTHENIA
     Route: 048
     Dates: start: 20161228
  19. ENAPRIL [Concomitant]
     Active Substance: ENALAPRIL
     Indication: HYPERTENSION
     Route: 048
     Dates: start: 20170125

REACTIONS (1)
  - Ataxia [Recovered/Resolved]

NARRATIVE: CASE EVENT DATE: 20161230
